FAERS Safety Report 5245417-0 (Version None)
Quarter: 2007Q1

REPORT INFORMATION
  Report Type: 
  Country: None (occurrence: None)
  Receive Date: 20070223
  Receipt Date: 20070208
  Transmission Date: 20070707
  Serious: Yes (Hospitalization, Other)
  Sender: FDA-Public Use
  Company Number: US-SHR-US-2006-029914

PATIENT
  Age: 64 Year
  Sex: Male
  Weight: 52 kg

DRUGS (10)
  1. BETASERON [Suspect]
     Indication: RELAPSING-REMITTING MULTIPLE SCLEROSIS
     Dosage: 8 MIU, EVERY 2D
     Route: 058
     Dates: end: 20070207
  2. BETASERON [Suspect]
     Dosage: 8 MIU, EVERY 2D
     Route: 058
     Dates: start: 20060903, end: 20061001
  3. BETASERON [Suspect]
     Dosage: 6 MIU, EVERY 2D
     Route: 058
     Dates: start: 20061001, end: 20061001
  4. BETASERON [Suspect]
     Dosage: 8 MIU, EVERY 2D
     Route: 058
     Dates: start: 20061001
  5. PRESODINE [Concomitant]
     Dates: start: 19710901
  6. HALCION [Suspect]
     Dates: start: 20061027, end: 20061027
  7. CARBATROL [Concomitant]
     Dates: end: 20061001
  8. TYLENOL [Suspect]
     Dates: start: 20061027, end: 20061027
  9. LANOXIN [Concomitant]
  10. HYDROCHLOROTHIAZIDE [Concomitant]
     Dates: end: 20061001

REACTIONS (17)
  - ADRENAL MASS [None]
  - ANAEMIA MACROCYTIC [None]
  - ASTHENIA [None]
  - BRAIN NEOPLASM BENIGN [None]
  - DECREASED APPETITE [None]
  - FALL [None]
  - HYPOKALAEMIA [None]
  - HYPONATRAEMIA [None]
  - HYPOTENSION [None]
  - LUNG NEOPLASM MALIGNANT [None]
  - MENTAL STATUS CHANGES [None]
  - MULTIPLE SCLEROSIS [None]
  - NAUSEA [None]
  - POOR PERIPHERAL CIRCULATION [None]
  - RENAL FAILURE [None]
  - SPEECH DISORDER [None]
  - VOMITING [None]
